FAERS Safety Report 7211713-0 (Version None)
Quarter: 2011Q1

REPORT INFORMATION
  Report Type: 
  Country: None (occurrence: None)
  Receive Date: 20110105
  Receipt Date: 20110104
  Transmission Date: 20110831
  Serious: Yes (Other)
  Sender: FDA-Public Use
  Company Number: CN-PFIZER INC-2010166502

PATIENT

DRUGS (1)
  1. SULPERAZON [Suspect]
     Indication: PERITONITIS BACTERIAL
     Route: 041

REACTIONS (1)
  - HEPATIC LESION [None]
